FAERS Safety Report 6511812-2 (Version None)
Quarter: 2009Q4

REPORT INFORMATION
  Report Type: 
  Country: None (occurrence: None)
  Receive Date: 20091222
  Receipt Date: 20091217
  Transmission Date: 20100525
  Serious: Yes (Hospitalization, Other)
  Sender: FDA-Public Use
  Company Number: US-ABBOTT-09P-163-0615153-00

PATIENT
  Sex: Female
  Weight: 81.72 kg

DRUGS (11)
  1. HUMIRA [Suspect]
     Indication: PSORIATIC ARTHROPATHY
     Route: 058
     Dates: start: 20091217
  2. HUMIRA [Suspect]
     Route: 058
     Dates: start: 20070101, end: 20080101
  3. HUMIRA [Suspect]
     Route: 058
     Dates: start: 20080101, end: 20091101
  4. DILTIAZEM [Concomitant]
     Indication: HYPERTENSION
     Route: 048
  5. PREDNISONE [Concomitant]
     Indication: PSORIATIC ARTHROPATHY
     Route: 048
  6. OMEPRAZOLE [Concomitant]
     Indication: ABDOMINAL DISCOMFORT
     Route: 048
  7. LABETALOL HCL [Concomitant]
     Indication: HYPERTENSION
     Dosage: 1/2 AM (100MG) MAY TAKE ADDL 1/2 PRN
     Route: 048
  8. FOLIC ACID [Concomitant]
     Indication: PROPHYLAXIS
     Route: 048
  9. ASPIRIN [Concomitant]
     Indication: CARDIOVASCULAR EVENT PROPHYLAXIS
     Route: 048
  10. MORPHINE SULFATE [Concomitant]
     Indication: PAIN MANAGEMENT
     Route: 048
     Dates: start: 20080101
  11. KLOR-CON [Concomitant]
     Indication: ELECTROLYTE SUBSTITUTION THERAPY
     Route: 048

REACTIONS (5)
  - DRUG INEFFECTIVE [None]
  - FOOT OPERATION [None]
  - PAIN [None]
  - PSORIATIC ARTHROPATHY [None]
  - TRANSPLANT FAILURE [None]
